FAERS Safety Report 20518302 (Version 1)
Quarter: 2022Q1

REPORT INFORMATION
  Report Type: Spontaneous
  Country: US (occurrence: US)
  Receive Date: 20220225
  Receipt Date: 20220225
  Transmission Date: 20220424
  Serious: No
  Sender: FDA-Public Use
  Company Number: US-CELGENE-USA-20220207060

PATIENT
  Age: 74 Year
  Sex: Male
  Weight: 99.880 kg

DRUGS (1)
  1. REVLIMID [Suspect]
     Active Substance: LENALIDOMIDE
     Indication: Plasma cell myeloma
     Dosage: 10 MILLIGRAM
     Route: 048
     Dates: start: 20220201

REACTIONS (2)
  - Full blood count decreased [Unknown]
  - Joint swelling [Unknown]

NARRATIVE: CASE EVENT DATE: 20220216
